FAERS Safety Report 7606254-2 (Version None)
Quarter: 2011Q3

REPORT INFORMATION
  Report Type: 
  Country: None (occurrence: None)
  Receive Date: 20110713
  Receipt Date: 20110630
  Transmission Date: 20111222
  Serious: Yes (Hospitalization, Other)
  Sender: FDA-Public Use
  Company Number: US-BAYER-2010-003584

PATIENT
  Age: 18 Year
  Sex: Female
  Weight: 58.957 kg

DRUGS (10)
  1. YASMIN [Suspect]
     Indication: CONTRACEPTION
     Dosage: UNK
     Dates: start: 20090209, end: 20091201
  2. YASMIN [Suspect]
     Indication: ACNE
  3. YAZ [Suspect]
     Indication: ACNE
  4. YASMIN [Suspect]
     Indication: PREMENSTRUAL SYNDROME
  5. PERCOCET [Concomitant]
  6. GOLYTELY [Concomitant]
     Dosage: UNK
     Dates: start: 20091113
  7. YAZ [Suspect]
     Indication: CONTRACEPTION
     Dosage: UNK
     Dates: start: 20090209, end: 20091201
  8. YAZ [Suspect]
     Indication: PREMENSTRUAL SYNDROME
  9. RANITIDINE [Concomitant]
  10. PROCHLORPERAZ [Concomitant]
     Dosage: UNK
     Dates: start: 20091118

REACTIONS (4)
  - CHOLECYSTITIS CHRONIC [None]
  - GALLBLADDER DISORDER [None]
  - PAIN [None]
  - DEFORMITY [None]
